FAERS Safety Report 4822232-0 (Version None)
Quarter: 2005Q4

REPORT INFORMATION
  Report Type: 
  Country: None (occurrence: None)
  Receive Date: 20051103
  Receipt Date: 20051014
  Transmission Date: 20060501
  Serious: Yes (Hospitalization)
  Sender: FDA-Public Use
  Company Number: 218059

PATIENT
  Age: 42 Year
  Sex: Male
  Weight: 78.3 kg

DRUGS (11)
  1. AVASTIN [Suspect]
     Indication: METASTATIC GASTRIC CANCER
     Dosage: 15 MG/KG, Q3W, INTRAVENOUS
     Route: 042
     Dates: start: 20050922
  2. OXALIPLATIN (OXALIPLATIN) [Suspect]
     Indication: METASTATIC GASTRIC CANCER
     Dosage: 75 MG/M2, Q3W, INTRAVENOUS
     Route: 042
     Dates: start: 20050922
  3. DOCETAXEL (DOCETAXEL) [Suspect]
     Indication: METASTATIC GASTRIC CANCER
     Dosage: 70 MG/M2, Q3W, INTRAVENOUS
     Route: 042
     Dates: start: 20050922
  4. FENTANYL PATCH (FENTANYL CITRATE) [Concomitant]
  5. OXYCODONE HCL [Concomitant]
  6. METOCLOPRAMIDE (METOCLOPRAMIDE HYDROCHLORIDE) [Concomitant]
  7. COLACE (DOCUSATE SODIUM) [Concomitant]
  8. MILK OF MAGNESIA (MILK OF MAGNESIA) [Concomitant]
  9. METOPROLOL TARTRATE [Concomitant]
  10. ATIVAN [Concomitant]
  11. KEFLEX [Concomitant]

REACTIONS (5)
  - BRONCHITIS ACUTE [None]
  - FEELING ABNORMAL [None]
  - HYPOTENSION [None]
  - LEUKOCYTOSIS [None]
  - PAIN [None]
